FAERS Safety Report 6774650-1 (Version None)
Quarter: 2010Q2

REPORT INFORMATION
  Report Type: 
  Country: None (occurrence: None)
  Receive Date: 20100617
  Receipt Date: 20100615
  Transmission Date: 20101027
  Serious: Yes (Hospitalization)
  Sender: FDA-Public Use
  Company Number: US-B.I. PHARMACEUTICALS,INC./RIDGEFIELD-2010-BP-06746BP

PATIENT
  Age: 14 Year
  Sex: Female

DRUGS (6)
  1. CLONIDINE HCL [Suspect]
     Indication: TIC
     Dosage: 0.1 MG
     Route: 048
     Dates: start: 20090101
  2. CLARITIN [Concomitant]
     Indication: SEASONAL ALLERGY
  3. SINGULAIR [Concomitant]
     Indication: ASTHMA
  4. ADVAIR DISKUS 100/50 [Concomitant]
     Indication: ASTHMA
  5. NASONEX [Concomitant]
     Indication: SEASONAL ALLERGY
  6. ALBUTEROL [Concomitant]
     Indication: ASTHMA

REACTIONS (1)
  - DEPRESSION [None]
